FAERS Safety Report 4656999-1 (Version None)
Quarter: 2005Q2

REPORT INFORMATION
  Report Type: 
  Country: None (occurrence: None)
  Receive Date: 20050509
  Receipt Date: 20050428
  Transmission Date: 20051028
  Serious: Yes (Disabling)
  Sender: FDA-Public Use
  Company Number: US-MERCK-0505USA00383

PATIENT
  Age: 43 Year
  Sex: Male

DRUGS (1)
  1. VIOXX [Suspect]
     Route: 048

REACTIONS (6)
  - CORONARY ARTERY ATHEROSCLEROSIS [None]
  - CORONARY ARTERY OCCLUSION [None]
  - HYPOAESTHESIA [None]
  - MYOCARDIAL ISCHAEMIA [None]
  - PAIN IN EXTREMITY [None]
  - SOMNOLENCE [None]
